FAERS Safety Report 13045714 (Version 1)
Quarter: 2016Q4

REPORT INFORMATION
  Report Type: Report from Study
  Country: US (occurrence: US)
  Receive Date: 20161220
  Receipt Date: 20161220
  Transmission Date: 20170207
  Serious: No
  Sender: FDA-Public Use
  Company Number: US-BIOVITRUM-2015US0626

PATIENT
  Age: 36 Year
  Sex: Female
  Weight: 78.09 kg

DRUGS (4)
  1. MULTIVITAMINS [Concomitant]
     Active Substance: VITAMINS
  2. CITALOPRAM HYDROBROMIDE. [Concomitant]
     Active Substance: CITALOPRAM HYDROBROMIDE
     Route: 048
     Dates: start: 201509
  3. CITALOPRAM HYDROBROMIDE. [Concomitant]
     Active Substance: CITALOPRAM HYDROBROMIDE
     Route: 048
     Dates: start: 2015, end: 201509
  4. KINERET [Suspect]
     Active Substance: ANAKINRA
     Route: 058
     Dates: start: 201506

REACTIONS (1)
  - Alopecia [Not Recovered/Not Resolved]

NARRATIVE: CASE EVENT DATE: 201509
